FAERS Safety Report 15207342 (Version 1)
Quarter: 2018Q3

REPORT INFORMATION
  Report Type: Spontaneous
  Country: GB (occurrence: GB)
  Receive Date: 20180727
  Receipt Date: 20180727
  Transmission Date: 20181010
  Serious: Yes (Other)
  Sender: FDA-Public Use
  Company Number: GB-PFIZER INC-2018294793

PATIENT
  Age: 74 Year
  Sex: Female
  Weight: 60 kg

DRUGS (16)
  1. GAVISCON ADVANCE [Concomitant]
     Active Substance: POTASSIUM BICARBONATE\SODIUM ALGINATE
     Dosage: 5ML OR 10ML 4 TIMES/DAY
     Dates: start: 20180301
  2. MOVELAT /00479601/ [Concomitant]
     Dosage: AS DIRECTED
     Dates: start: 20170117
  3. HYOSCINE BUTYLBROMIDE [Concomitant]
     Active Substance: BUTYLSCOPOLAMINE
     Dosage: UNK, TAKE TWO UP TO 4 TIMES/DAY.
     Dates: start: 20170117
  4. AMLODIPINE [Concomitant]
     Active Substance: AMLODIPINE BESYLATE
     Dosage: 1 DF, 1X/DAY
     Dates: start: 20170117
  5. CELECOXIB. [Concomitant]
     Active Substance: CELECOXIB
     Indication: ARTHRALGIA
     Dosage: UNK, TAKE ONE OR TWO DAILY.
     Dates: start: 20170822, end: 20180416
  6. SOLIFENACIN [Concomitant]
     Active Substance: SOLIFENACIN
     Dosage: 1 DF, 1X/DAY
     Dates: start: 20170117
  7. MOMETASONE [Concomitant]
     Active Substance: MOMETASONE
     Dosage: 1?2 TWICE DAILY
     Dates: start: 20170117
  8. GLANDOSANE /01287301/ [Concomitant]
     Dosage: UNK, USE AS DIRECTED
     Dates: start: 20170117
  9. ISPAGHULA EXTRACT\PSYLLIUM [Concomitant]
     Active Substance: HERBALS\PLANTAGO OVATA SEED\PLANTAGO SEED
     Dosage: 2 DF, 1X/DAY
     Dates: start: 20170207
  10. PAROXETINE. [Concomitant]
     Active Substance: PAROXETINE
     Dosage: 0.5 DF, 1X/DAY
     Dates: start: 20170220
  11. DOXAZOSIN MESILATE [Suspect]
     Active Substance: DOXAZOSIN MESYLATE
     Dosage: UNK
     Dates: start: 20180620
  12. ATORVASTATIN [Concomitant]
     Active Substance: ATORVASTATIN
     Dosage: 1 DF, 1X/DAY
     Dates: start: 20170117
  13. FEXOFENADINE [Concomitant]
     Active Substance: FEXOFENADINE\FEXOFENADINE HYDROCHLORIDE
     Dosage: 0.25 DF, 1X/DAY
     Dates: start: 20170117
  14. ESOMEPRAZOLE [Concomitant]
     Active Substance: ESOMEPRAZOLE
     Dosage: 1 DF, 1X/DAY, AT NIGHT
     Dates: start: 20170117
  15. NITROFURANTOIN. [Concomitant]
     Active Substance: NITROFURANTOIN
     Dosage: 2 DF, 1X/DAY
     Dates: start: 20180606, end: 20180609
  16. TRAMADOL. [Concomitant]
     Active Substance: TRAMADOL
     Indication: PAIN
     Dosage: UNK, TAKE ONE TO TWO UP TO 4 TIMES A DAY
     Dates: start: 20180608, end: 20180609

REACTIONS (1)
  - Nausea [Recovered/Resolved]

NARRATIVE: CASE EVENT DATE: 20180620
